FAERS Safety Report 8557035-7 (Version None)
Quarter: 2012Q3

REPORT INFORMATION
  Report Type: 
  Country: None (occurrence: None)
  Receive Date: 20120801
  Receipt Date: 20120725
  Transmission Date: 20120928
  Serious: Yes (Other)
  Sender: FDA-Public Use
  Company Number: US-JNJFOC-20120706803

PATIENT
  Age: 29 Year
  Sex: Female
  Weight: 99.77 kg

DRUGS (11)
  1. CODEINE [Suspect]
     Indication: EHLERS-DANLOS SYNDROME
     Route: 065
  2. NEURONTIN [Suspect]
     Dosage: TWO TIMES A DAY
     Route: 048
     Dates: start: 20120101, end: 20120101
  3. NEURONTIN [Suspect]
     Indication: EHLERS-DANLOS SYNDROME
     Dosage: THRICE DAILY
     Route: 048
     Dates: end: 20120707
  4. NEURONTIN [Suspect]
     Dosage: DAILY
     Route: 048
     Dates: start: 20120601, end: 20120101
  5. NEURONTIN [Suspect]
     Dosage: DAILY
     Route: 048
     Dates: start: 20120618
  6. NON STEROIDAL ANTI-INFLAMMATORY DRUGS [Suspect]
     Indication: EHLERS-DANLOS SYNDROME
     Route: 065
  7. CYCLOBENZAPRINE [Concomitant]
     Indication: MUSCLE SPASTICITY
     Dosage: 1 TO 2 MG, ONCE PER DAY AT NIGHT
     Route: 065
  8. TRAMADOL HYDROCHLORIDE [Suspect]
     Indication: EHLERS-DANLOS SYNDROME
     Route: 065
  9. VICODIN [Suspect]
     Indication: EHLERS-DANLOS SYNDROME
     Route: 065
  10. NEURONTIN [Suspect]
     Dosage: TWO TIMES A DAY
     Route: 048
     Dates: start: 20120601
  11. IBUPROFEN [Suspect]
     Indication: EHLERS-DANLOS SYNDROME
     Route: 065

REACTIONS (19)
  - ERYTHEMA [None]
  - BALANCE DISORDER [None]
  - CLUMSINESS [None]
  - PSYCHOMOTOR HYPERACTIVITY [None]
  - SENSORY LOSS [None]
  - SOMNOLENCE [None]
  - ABNORMAL BEHAVIOUR [None]
  - SKIN SWELLING [None]
  - MANIA [None]
  - ALOPECIA [None]
  - HYPERSENSITIVITY [None]
  - DIZZINESS [None]
  - FATIGUE [None]
  - GASTRIC ULCER [None]
  - INSOMNIA [None]
  - ABDOMINAL DISTENSION [None]
  - ARTHROPATHY [None]
  - ANGER [None]
  - WITHDRAWAL SYNDROME [None]
